FAERS Safety Report 10783510 (Version 1)
Quarter: 2015Q1

REPORT INFORMATION
  Report Type: Spontaneous
  Country: US (occurrence: US)
  Receive Date: 20150210
  Receipt Date: 20150210
  Transmission Date: 20150721
  Serious: No
  Sender: FDA-Public Use
  Company Number: US-BAUSCH-BL-2014-005320

PATIENT
  Sex: Female

DRUGS (2)
  1. SULFACETAMIDE SODIUM. [Suspect]
     Active Substance: SULFACETAMIDE SODIUM
     Indication: PRODUCT USED FOR UNKNOWN INDICATION
     Route: 061
  2. ADAPALENE. [Suspect]
     Active Substance: ADAPALENE
     Indication: PRODUCT USED FOR UNKNOWN INDICATION
     Route: 061

REACTIONS (3)
  - Swelling face [Unknown]
  - Application site rash [Unknown]
  - Application site erythema [Unknown]
